FAERS Safety Report 4464010-0 (Version None)
Quarter: 2004Q4

REPORT INFORMATION
  Report Type: 
  Country: None (occurrence: None)
  Receive Date: 20041001
  Receipt Date: 20040921
  Transmission Date: 20050328
  Serious: Yes (Other)
  Sender: FDA-Public Use
  Company Number: AE-ABBOTT-04P-166-0274301-00

PATIENT
  Age: 36 Year
  Sex: Female

DRUGS (3)
  1. DEPAKINE CHRONO TABLETS [Suspect]
     Indication: AFFECTIVE DISORDER
     Route: 048
     Dates: start: 20040824
  2. DEPAKINE CHRONO TABLETS [Suspect]
     Indication: PSYCHOTIC DISORDER
  3. RISPERIDONE [Suspect]
     Indication: PSYCHOTIC DISORDER
     Route: 048
     Dates: start: 20040824

REACTIONS (1)
  - MENORRHAGIA [None]
